FAERS Safety Report 5816467-8 (Version None)
Quarter: 2008Q3

REPORT INFORMATION
  Report Type: 
  Country: None (occurrence: None)
  Receive Date: 20080716
  Receipt Date: 20080505
  Transmission Date: 20090109
  Serious: Yes (Other)
  Sender: FDA-Public Use
  Company Number: 2008US001136

PATIENT
  Age: 64 Year
  Sex: Female
  Weight: 104.3 kg

DRUGS (9)
  1. ADENOSCAN [Suspect]
     Indication: SCAN MYOCARDIAL PERFUSION
     Dosage: 29 ML, TOTAL DOSE, IV NOS
     Route: 042
     Dates: start: 20080418, end: 20080418
  2. COUMADIN [Concomitant]
  3. DARVOCET (DEXTROPROPOXYPHENE NAPSILATE) [Concomitant]
  4. BENICAR [Concomitant]
  5. TARKA [Concomitant]
  6. TORSEMIDE [Concomitant]
  7. VYTORIN [Concomitant]
  8. NEBIVOLOL HCL [Concomitant]
  9. ACTOS [Concomitant]

REACTIONS (3)
  - HYPOTENSION [None]
  - RETCHING [None]
  - VOMITING [None]
